FAERS Safety Report 24035166 (Version 1)
Quarter: 2024Q2

REPORT INFORMATION
  Report Type: Spontaneous
  Country: US (occurrence: None)
  Receive Date: 20240628
  Receipt Date: 20240628
  Transmission Date: 20240716
  Serious: Yes (Hospitalization)
  Sender: FDA-Public Use
  Company Number: None

PATIENT
  Age: 73 Year
  Sex: Male

DRUGS (17)
  1. TASIGNA [Suspect]
     Active Substance: NILOTINIB
     Indication: Chronic myeloid leukaemia
     Dosage: 150 MB BID ORAL
     Route: 048
     Dates: start: 20230810
  2. FUROSEMIDE [Concomitant]
     Active Substance: FUROSEMIDE
  3. METOPROLOL [Concomitant]
  4. FLUOXETINE [Concomitant]
  5. SERTRALINE [Concomitant]
  6. LINZESS [Concomitant]
     Active Substance: LINACLOTIDE
  7. MELATONIN [Concomitant]
  8. PROBIOTIC COLON [Concomitant]
  9. NITROGLYGERIN [Concomitant]
  10. PEPTO BISMOL [Concomitant]
  11. ALLOPURINOL [Concomitant]
  12. CEPHALEXIN [Concomitant]
  13. ASPIRIN EC LOW [Concomitant]
  14. LISINOPRIL [Concomitant]
  15. ATORVASTATIN [Concomitant]
  16. FINASTERIDE [Concomitant]
  17. LOPERAMIDE [Concomitant]

REACTIONS (2)
  - Cardiac failure congestive [None]
  - Intentional dose omission [None]

NARRATIVE: CASE EVENT DATE: 20240601
